FAERS Safety Report 13489016 (Version 1)
Quarter: 2017Q2

REPORT INFORMATION
  Report Type: Spontaneous
  Country: US (occurrence: US)
  Receive Date: 20170427
  Receipt Date: 20170427
  Transmission Date: 20170830
  Serious: Yes (Other)
  Sender: FDA-Public Use
  Company Number: US-BAYER-2017-073871

PATIENT
  Age: 15 Year
  Sex: Female

DRUGS (7)
  1. METHOTREXATE. [Suspect]
     Active Substance: METHOTREXATE
  2. VINCRISTINE [Suspect]
     Active Substance: VINCRISTINE
  3. HYDROXYUREA. [Concomitant]
     Active Substance: HYDROXYUREA
  4. NEXAVAR [Suspect]
     Active Substance: SORAFENIB
     Indication: DESMOID TUMOUR
     Dosage: 200 MG, BID
     Route: 048
     Dates: start: 201201, end: 201204
  5. NEXAVAR [Suspect]
     Active Substance: SORAFENIB
     Indication: DESMOID TUMOUR
     Dosage: 200 MG, BID
     Route: 048
  6. DOXIL [DICLOXACILLIN SODIUM MONOHYDRATE] [Concomitant]
  7. TOREMIFENE [Concomitant]
     Active Substance: TOREMIFENE
     Dosage: UNK
     Dates: start: 20160930

REACTIONS (2)
  - Off label use [None]
  - Desmoid tumour [None]
